FAERS Safety Report 15980894 (Version 1)
Quarter: 2019Q1

REPORT INFORMATION
  Report Type: Spontaneous
  Country: US (occurrence: US)
  Receive Date: 20190218
  Receipt Date: 20190218
  Transmission Date: 20190418
  Serious: No
  Sender: FDA-Public Use
  Company Number: None

PATIENT
  Age: 10 Year
  Sex: Male

DRUGS (9)
  1. ONFI [Concomitant]
     Active Substance: CLOBAZAM
  2. BANZEL [Concomitant]
     Active Substance: RUFINAMIDE
  3. MELATONIN [Concomitant]
     Active Substance: MELATONIN
  4. FYCOMPA [Concomitant]
     Active Substance: PERAMPANEL
  5. TRAZODONE HYDROCHLORIDE. [Concomitant]
     Active Substance: TRAZODONE HYDROCHLORIDE
  6. REGLAN [Concomitant]
     Active Substance: METOCLOPRAMIDE HYDROCHLORIDE
  7. MIRALAX [Concomitant]
     Active Substance: POLYETHYLENE GLYCOL 3350
  8. EPIDIOLEX [Suspect]
     Active Substance: CANNABIDIOL
     Indication: LENNOX-GASTAUT SYNDROME
     Dosage: ?          OTHER FREQUENCY:EVERY 12 HOURS;?
     Route: 048
     Dates: start: 20190122
  9. LACUTLOSE [Concomitant]

REACTIONS (2)
  - Hypersomnia [None]
  - Asthenia [None]

NARRATIVE: CASE EVENT DATE: 20190215
